FAERS Safety Report 12171837 (Version 1)
Quarter: 2016Q1

REPORT INFORMATION
  Report Type: Spontaneous
  Country: RO (occurrence: RO)
  Receive Date: 20160311
  Receipt Date: 20160311
  Transmission Date: 20160526
  Serious: Yes (Other)
  Sender: FDA-Public Use
  Company Number: RO-JNJFOC-20160307307

PATIENT
  Age: 2 Year
  Sex: Female

DRUGS (2)
  1. RISPOLEPT [Suspect]
     Active Substance: RISPERIDONE
     Indication: PRODUCT USED FOR UNKNOWN INDICATION
     Dosage: FOR 1 YEAR
     Route: 065
  2. LEVOMEPROMAZINE [Concomitant]
     Active Substance: LEVOMEPROMAZINE
     Indication: AGITATION
     Dosage: ONE QUARTER IN THE MORNING OR EVENING
     Route: 065

REACTIONS (7)
  - Dependence [Unknown]
  - Agitation [Unknown]
  - Off label use [Unknown]
  - Decreased appetite [Unknown]
  - Sleep disorder [Unknown]
  - Condition aggravated [Unknown]
  - Product use issue [Unknown]
